FAERS Safety Report 10355594 (Version 3)
Quarter: 2014Q3

REPORT INFORMATION
  Report Type: Spontaneous
  Country: US (occurrence: None)
  Receive Date: 20140728
  Receipt Date: 20140911
  Transmission Date: 20150326
  Serious: Yes (Hospitalization)
  Sender: FDA-Public Use
  Company Number: UNT-2014-004394

PATIENT
  Age: 64 Year
  Sex: Female
  Weight: 56.2 kg

DRUGS (4)
  1. ADCIRCA [Concomitant]
     Active Substance: TADALAFIL
  2. REMODULIN [Suspect]
     Active Substance: TREPROSTINIL
     Indication: COR PULMONALE CHRONIC
     Route: 058
     Dates: start: 20131219
  3. LETAIRIS [Concomitant]
     Active Substance: AMBRISENTAN
  4. COUMADIN [Concomitant]
     Active Substance: WARFARIN SODIUM

REACTIONS (4)
  - Oedema peripheral [None]
  - Fluid retention [None]
  - Cardiac failure congestive [None]
  - Pulmonary arterial hypertension [None]

NARRATIVE: CASE EVENT DATE: 20140716
